FAERS Safety Report 14277252 (Version 3)
Quarter: 2018Q1

REPORT INFORMATION
  Report Type: Report from Study
  Country: CZ (occurrence: CZ)
  Receive Date: 20171212
  Receipt Date: 20180201
  Transmission Date: 20180508
  Serious: Yes (Hospitalization, Other)
  Sender: FDA-Public Use
  Company Number: CZ-PFIZER INC-2017523545

PATIENT
  Age: 72 Year
  Sex: Male

DRUGS (12)
  1. HELICID /00661201/ [Concomitant]
     Indication: PROPHYLAXIS
     Dosage: UNK
     Route: 065
     Dates: start: 20150925, end: 20150925
  2. FLUOROURACIL. [Suspect]
     Active Substance: FLUOROURACIL
     Dosage: 3700 MG, CYCLIC
     Route: 041
     Dates: start: 20150908, end: 20150908
  3. AFLIBERCEPT [Suspect]
     Active Substance: AFLIBERCEPT
     Dosage: 275 MG, UNK
     Dates: start: 20150908, end: 20150908
  4. FLUOROURACIL. [Suspect]
     Active Substance: FLUOROURACIL
     Indication: COLORECTAL CANCER METASTATIC
     Dosage: 610 MG, CYCLIC
     Route: 040
     Dates: start: 20150908, end: 20150908
  5. LEUCOVORIN /00566701/ [Suspect]
     Active Substance: LEUCOVORIN
     Dosage: UNK
  6. IRINOTECAN LIPOSOME INJECTION [Suspect]
     Active Substance: IRINOTECAN HYDROCHLORIDE
     Indication: COLORECTAL CANCER METASTATIC
     Dosage: 275 MG, CYCLIC
     Route: 041
     Dates: start: 20150908, end: 20150908
  7. DEGAN [Concomitant]
     Active Substance: METOCLOPRAMIDE HYDROCHLORIDE
     Dosage: UNK
     Route: 065
  8. EMEND [Concomitant]
     Active Substance: APREPITANT
     Indication: PROPHYLAXIS
     Dosage: UNK
     Route: 065
     Dates: start: 20150925, end: 20150927
  9. MEGACE [Concomitant]
     Active Substance: MEGESTROL ACETATE
     Indication: PROPHYLAXIS
     Dosage: UNK
     Route: 065
     Dates: start: 20150922
  10. DEGAN [Concomitant]
     Active Substance: METOCLOPRAMIDE HYDROCHLORIDE
     Indication: PROPHYLAXIS
     Dosage: UNK
     Route: 065
     Dates: start: 20150925, end: 20150925
  11. LEUCOVORIN /00566701/ [Suspect]
     Active Substance: LEUCOVORIN
     Indication: COLORECTAL CANCER METASTATIC
     Dosage: 610 MG, CYCLIC
     Route: 041
     Dates: start: 20150908, end: 20150908
  12. AFLIBERCEPT [Suspect]
     Active Substance: AFLIBERCEPT
     Indication: COLORECTAL CANCER METASTATIC
     Dosage: 212 MG, CYCLIC
     Route: 041
     Dates: start: 20150908, end: 20150908

REACTIONS (2)
  - Haematuria [Recovered/Resolved]
  - Hiccups [Recovered/Resolved]

NARRATIVE: CASE EVENT DATE: 20151009
